FAERS Safety Report 19170121 (Version 2)
Quarter: 2021Q2

REPORT INFORMATION
  Report Type: Spontaneous
  Country: US (occurrence: US)
  Receive Date: 20210422
  Receipt Date: 20210528
  Transmission Date: 20210717
  Serious: Yes (Other)
  Sender: FDA-Public Use
  Company Number: US-BIOHAVEN PHARMACEUTICALS-2021BHV00462

PATIENT
  Age: 43 Year
  Sex: Female
  Weight: 71.66 kg

DRUGS (10)
  1. ELDERBERRY [Concomitant]
     Active Substance: HERBALS
  2. PROBIOTIC [Concomitant]
     Active Substance: PROBIOTICS NOS
  3. BOTOX [Concomitant]
     Active Substance: ONABOTULINUMTOXINA
  4. TOPIRAMATE. [Concomitant]
     Active Substance: TOPIRAMATE
  5. NURTEC ODT [Suspect]
     Active Substance: RIMEGEPANT SULFATE
     Indication: MIGRAINE
     Dosage: 75 MG, 1X/DAY
     Route: 048
     Dates: start: 20201002, end: 20210402
  6. VITAMIN D [Concomitant]
     Active Substance: VITAMIN D NOS
  7. BUTALBITAL/ACETAMINOPHEN/CAFFEINE/CODEINE [Concomitant]
     Active Substance: ACETAMINOPHEN\BUTALBITAL\CAFFEINE\CODEINE PHOSPHATE
  8. PROMETHAZINE [Concomitant]
     Active Substance: PROMETHAZINE HYDROCHLORIDE
  9. LINZESS [Concomitant]
     Active Substance: LINACLOTIDE
  10. ZOLPIDEM [Concomitant]
     Active Substance: ZOLPIDEM TARTRATE

REACTIONS (2)
  - Seizure [Recovered/Resolved]
  - Inappropriate schedule of product administration [Recovered/Resolved]

NARRATIVE: CASE EVENT DATE: 20201002
